FAERS Safety Report 4298854-5 (Version None)
Quarter: 2004Q1

REPORT INFORMATION
  Report Type: 
  Country: None (occurrence: None)
  Receive Date: 20040126
  Receipt Date: 20031107
  Transmission Date: 20041129
  Serious: No
  Sender: FDA-Public Use
  Company Number: USA031151999

PATIENT
  Age: 51 Year
  Sex: Male

DRUGS (2)
  1. STRATTERA [Suspect]
     Dosage: 80 MG/DAY
     Dates: start: 20031001
  2. WELLBUTRIN [Concomitant]

REACTIONS (3)
  - BLADDER PAIN [None]
  - DYSPAREUNIA [None]
  - PAINFUL ERECTION [None]
